FAERS Safety Report 9018214 (Version 1)
Quarter: 2013Q1

REPORT INFORMATION
  Report Type: Spontaneous
  Country: US (occurrence: None)
  Receive Date: 20130111
  Receipt Date: 20130111
  Transmission Date: 20140127
  Serious: No
  Sender: FDA-Public Use
  Company Number: None

PATIENT
  Sex: Male

DRUGS (1)
  1. TRIMIX [Suspect]
     Indication: ERECTILE DYSFUNCTION
     Dosage: ALPROSTADIL/PAPAVERINE/PHENTO ONCE INTRACAVERNOSAL
     Dates: start: 20121023

REACTIONS (3)
  - Priapism [None]
  - Blood pressure increased [None]
  - No therapeutic response [None]
